FAERS Safety Report 4572411-5 (Version None)
Quarter: 2005Q1

REPORT INFORMATION
  Report Type: 
  Country: None (occurrence: None)
  Receive Date: 20050207
  Receipt Date: 20050201
  Transmission Date: 20050727
  Serious: Yes (Other)
  Sender: FDA-Public Use
  Company Number: US-GLAXOSMITHKLINE-A0543321A

PATIENT
  Age: 20 Year
  Sex: Female

DRUGS (2)
  1. WELLBUTRIN [Suspect]
     Indication: BIPOLAR DISORDER
     Dosage: 100MG TWICE PER DAY
     Route: 048
     Dates: start: 20040415
  2. LAMICTAL [Concomitant]
     Dosage: 100MG TWICE PER DAY
     Dates: start: 20040330

REACTIONS (2)
  - LIVER FUNCTION TEST ABNORMAL [None]
  - PROTEIN TOTAL INCREASED [None]
